FAERS Safety Report 13046638 (Version 1)
Quarter: 2016Q4

REPORT INFORMATION
  Report Type: Spontaneous
  Country: FR (occurrence: FR)
  Receive Date: 20161220
  Receipt Date: 20161220
  Transmission Date: 20170207
  Serious: Yes (Other)
  Sender: FDA-Public Use
  Company Number: PHHY2016FR171697

PATIENT
  Age: 1 Month
  Sex: Male

DRUGS (1)
  1. TASIGNA [Suspect]
     Active Substance: NILOTINIB
     Indication: FOETAL EXPOSURE DURING PREGNANCY
     Dosage: FETAL DRUG EXPOSURE VIA FATHER, 400 MG BID FOR 33 MONTHS
     Route: 064

REACTIONS (4)
  - Pulmonary valve stenosis [Unknown]
  - Acute myeloid leukaemia [Unknown]
  - Cardiac murmur [Unknown]
  - Exposure via father [Unknown]
